FAERS Safety Report 23681517 (Version 1)
Quarter: 2024Q1

REPORT INFORMATION
  Report Type: Spontaneous
  Country: PL (occurrence: PL)
  Receive Date: 20240328
  Receipt Date: 20240328
  Transmission Date: 20240409
  Serious: Yes (Hospitalization, Other)
  Sender: FDA-Public Use
  Company Number: PL-002147023-NVSC2024PL044854

PATIENT
  Age: 31 Year
  Sex: Female

DRUGS (4)
  1. LETROZOLE [Suspect]
     Active Substance: LETROZOLE
     Indication: Product used for unknown indication
     Dosage: UNK
     Route: 065
  2. RIBOCICLIB [Suspect]
     Active Substance: RIBOCICLIB
     Indication: Breast cancer metastatic
     Dosage: 200 MILLIGRAM
     Route: 048
     Dates: start: 20240111
  3. RIBOCICLIB [Suspect]
     Active Substance: RIBOCICLIB
     Dosage: 200 MILLIGRAM
     Route: 048
     Dates: start: 20240130
  4. OMEPRAZOLE [Concomitant]
     Active Substance: OMEPRAZOLE
     Indication: Chronic gastritis
     Dosage: 40 MILLIGRAM, ONCE A DAY
     Route: 065

REACTIONS (7)
  - Tumour lysis syndrome [Unknown]
  - Nausea [Recovering/Resolving]
  - Condition aggravated [Unknown]
  - Metastases to bone [Unknown]
  - Pathological fracture [Unknown]
  - Neutrophil count decreased [Unknown]
  - Kidney enlargement [Unknown]

NARRATIVE: CASE EVENT DATE: 20240115
